FAERS Safety Report 6509822-4 (Version None)
Quarter: 2009Q4

REPORT INFORMATION
  Report Type: 
  Country: None (occurrence: None)
  Receive Date: 20091222
  Receipt Date: 20090303
  Transmission Date: 20100525
  Serious: No
  Sender: FDA-Public Use
  Company Number: US-ABBOTT-09P-163-0566733-00

PATIENT
  Sex: Male
  Weight: 9.534 kg

DRUGS (2)
  1. CEFDINIR [Suspect]
     Indication: EAR INFECTION
     Dosage: DAILY (FORM STRENGTH 250 MG/5 ML)
     Dates: start: 20090301, end: 20090302
  2. PHENABARBITOL [Concomitant]
     Indication: CONVULSION
     Route: 048

REACTIONS (1)
  - VOMITING [None]
